FAERS Safety Report 4521288-2 (Version None)
Quarter: 2004Q4

REPORT INFORMATION
  Report Type: 
  Country: None (occurrence: None)
  Receive Date: 20041208
  Receipt Date: 20041130
  Transmission Date: 20050328
  Serious: Yes (Hospitalization)
  Sender: FDA-Public Use
  Company Number: SE-GLAXOSMITHKLINE-B0359151A

PATIENT
  Age: 61 Year
  Sex: Male

DRUGS (4)
  1. FORTUM [Suspect]
     Indication: SEPSIS
     Dosage: 2G PER DAY
     Route: 042
     Dates: start: 20041003, end: 20041006
  2. SANDIMMUNE [Concomitant]
     Route: 065
  3. CELLCEPT [Concomitant]
     Route: 065
  4. TAZOCIN [Concomitant]
     Dates: start: 20041007

REACTIONS (3)
  - CONFUSIONAL STATE [None]
  - DISORIENTATION [None]
  - DRUG INTERACTION [None]
